FAERS Safety Report 7932242-2 (Version None)
Quarter: 2011Q4

REPORT INFORMATION
  Report Type: 
  Country: None (occurrence: None)
  Receive Date: 20111121
  Receipt Date: 20110721
  Transmission Date: 20120403
  Serious: No
  Sender: FDA-Public Use
  Company Number: US-AMGEN-USASP2011037362

PATIENT

DRUGS (2)
  1. VECTIBIX [Suspect]
     Indication: NON-SMALL CELL LUNG CANCER
     Dosage: UNK
  2. MAGNESIUM [Concomitant]

REACTIONS (1)
  - HYPOMAGNESAEMIA [None]
